FAERS Safety Report 9247383 (Version 4)
Quarter: 2013Q3

REPORT INFORMATION
  Report Type: Spontaneous
  Country: JP (occurrence: JP)
  Receive Date: 20130423
  Receipt Date: 20130930
  Transmission Date: 20140515
  Serious: Yes (Life-Threatening, Hospitalization, Other)
  Sender: FDA-Public Use
  Company Number: JP-009507513-1303JPN007867

PATIENT
  Age: 65 Year
  Sex: Male
  Weight: 55 kg

DRUGS (8)
  1. BRIDION INTRAVENOUS 200MG [Suspect]
     Indication: NEUROMUSCULAR BLOCKADE REVERSAL
     Dosage: 200 MG, QD
     Route: 042
     Dates: start: 20130314, end: 20130314
  2. ESLAX INTRAVENOUS 50MG/5.0ML [Suspect]
     Indication: NEUROMUSCULAR BLOCKING THERAPY
     Dosage: 50 MG, UNK
     Route: 042
     Dates: start: 20130314, end: 20130314
  3. CARBOCAIN [Suspect]
     Indication: POSTOPERATIVE ANALGESIA
     Dosage: 10ML QD, DIVIDED DOSE FREQUENCY U
     Route: 058
     Dates: start: 20130314
  4. PROPOFOL [Suspect]
     Indication: INDUCTION OF ANAESTHESIA
     Dosage: 100ML QD, DIVIDED DOSE FREQUENCY U
     Route: 042
     Dates: start: 20130314, end: 20130314
  5. SEVOFLURANE [Suspect]
     Indication: MAINTENANCE OF ANAESTHESIA
     Dosage: DAILY DOSAGE UNKNOWN
     Route: 055
     Dates: start: 20130314, end: 20130314
  6. ULTIVA [Suspect]
     Indication: MAINTENANCE OF ANAESTHESIA
     Dosage: DAILY DOSAGE UNKNOWN
     Route: 042
     Dates: start: 20130314, end: 20130314
  7. AUZEI [Suspect]
     Indication: HAEMOSTASIS
     Dosage: 100MG QD, DIVIDED DOSE FREQUENCY U
     Route: 042
     Dates: start: 20130314
  8. TRANEXAMIC ACID [Suspect]
     Indication: HAEMOSTASIS
     Dosage: 1000MG QD, DIVIDED DOSE FREQUENCY U
     Route: 042
     Dates: start: 20130314

REACTIONS (2)
  - Anaphylactic shock [Recovered/Resolved]
  - Respiratory arrest [Recovered/Resolved]
